FAERS Safety Report 24163802 (Version 2)
Quarter: 2024Q3

REPORT INFORMATION
  Report Type: Spontaneous
  Country: PT (occurrence: None)
  Receive Date: 20240801
  Receipt Date: 20240822
  Transmission Date: 20241017
  Serious: Yes (Other)
  Sender: ASTRAZENECA
  Company Number: 2024A168603

PATIENT
  Age: 80 Year
  Sex: Male

DRUGS (9)
  1. XIGDUO XR [Suspect]
     Active Substance: DAPAGLIFLOZIN PROPANEDIOL\METFORMIN HYDROCHLORIDE
     Indication: Type 2 diabetes mellitus
     Dosage: 1 AT BREAKFAST + 1 AT DINNER
     Route: 048
  2. EDOXABAN TOSYLATE [Concomitant]
     Active Substance: EDOXABAN TOSYLATE
     Dosage: AO PEQUENO ALMO?O
  3. FUROSEMIDE [Concomitant]
     Active Substance: FUROSEMIDE
  4. VALSARTAN [Concomitant]
     Active Substance: VALSARTAN
     Dosage: 1X/DIA
  5. LEVOTHYROXINE SODIUM [Concomitant]
     Active Substance: LEVOTHYROXINE SODIUM
     Dosage: EUTIROX 75 AND 50 MCG ON ALTERNATE DAYS (FASTING)
  6. ZETOVAR [Concomitant]
     Dosage: 1 {TOTAL} JANTAR
  7. SITAGLIPTIN [Concomitant]
     Active Substance: SITAGLIPTIN
     Dosage: AT LUNCH
  8. METFORMIN HYDROCHLORIDE [Concomitant]
     Active Substance: METFORMIN HYDROCHLORIDE
     Dosage: 1 AO JANTAR
  9. LEVOTHYROXINE SODIUM [Concomitant]
     Active Substance: LEVOTHYROXINE SODIUM
     Dosage: EUTIROX 75 E 50 MCG EM DIAS ALTERNADOS(EM JEJUM)

REACTIONS (5)
  - Weight decreased [Recovered/Resolved]
  - Decreased appetite [Recovered/Resolved]
  - Vomiting [Recovered/Resolved]
  - Diarrhoea [Recovered/Resolved]
  - Nausea [Recovered/Resolved]
